FAERS Safety Report 20835069 (Version 5)
Quarter: 2023Q1

REPORT INFORMATION
  Report Type: Report from Study
  Country: US (occurrence: US)
  Receive Date: 20220516
  Receipt Date: 20230206
  Transmission Date: 20230417
  Serious: Yes (Other)
  Sender: FDA-Public Use
  Company Number: US-NOVARTISTESTPH-NVSC2022US112459

PATIENT
  Sex: Female

DRUGS (1)
  1. AFINITOR [Suspect]
     Active Substance: EVEROLIMUS
     Indication: Product used for unknown indication
     Dosage: UNK
     Route: 065

REACTIONS (6)
  - Facial bones fracture [Unknown]
  - Platelet count abnormal [Unknown]
  - Tremor [Unknown]
  - Upper limb fracture [Unknown]
  - Platelet count increased [Unknown]
  - Wrong technique in product usage process [Unknown]
